FAERS Safety Report 22121793 (Version 1)
Quarter: 2023Q1

REPORT INFORMATION
  Report Type: Spontaneous
  Country: PT (occurrence: PT)
  Receive Date: 20230321
  Receipt Date: 20230321
  Transmission Date: 20230417
  Serious: Yes (Other)
  Sender: FDA-Public Use
  Company Number: PT-TEVA-2023-PT-2868402

PATIENT
  Age: 47 Year
  Sex: Female

DRUGS (3)
  1. CEFUROXIME [Suspect]
     Active Substance: CEFUROXIME
     Indication: Urinary tract infection
     Dosage: 1000 MILLIGRAM DAILY; 500MG EVERY 12 HOURS, RECEIVED FOUR DOSES
     Route: 065
  2. BISOPROLOL [Suspect]
     Active Substance: BISOPROLOL
     Indication: Hypertension
     Route: 065
  3. HYDROCHLOROTHIAZIDE [Concomitant]
     Active Substance: HYDROCHLOROTHIAZIDE
     Indication: Hypertension
     Route: 065

REACTIONS (11)
  - Anaphylactic reaction [Unknown]
  - Type I hypersensitivity [Unknown]
  - Drug hypersensitivity [Unknown]
  - Pruritus [Unknown]
  - Throat irritation [Unknown]
  - Anal incontinence [Unknown]
  - Urinary incontinence [Unknown]
  - Erythema [Unknown]
  - Lip oedema [Unknown]
  - Tongue oedema [Unknown]
  - Malaise [Unknown]
